FAERS Safety Report 7829317-5 (Version None)
Quarter: 2011Q4

REPORT INFORMATION
  Report Type: 
  Country: None (occurrence: None)
  Receive Date: 20111020
  Receipt Date: 20111014
  Transmission Date: 20120403
  Serious: Yes (Other)
  Sender: FDA-Public Use
  Company Number: GB-CEPHALON-2011004511

PATIENT
  Sex: Female

DRUGS (11)
  1. RITUXIMAB [Suspect]
  2. AMITRIPTYLINE HCL [Concomitant]
  3. ALLOPURINOL [Concomitant]
  4. THYROXIN [Concomitant]
  5. BENDAMUSTINE HCL [Suspect]
     Indication: LYMPHOMA
     Route: 042
     Dates: start: 20110802
  6. ACYCLOVIR [Concomitant]
  7. RISEDRONIC ACID [Concomitant]
  8. CETIRIZINE HCL [Concomitant]
  9. PROMETHAZINE [Concomitant]
  10. DAPSONE [Concomitant]
  11. PREDNISOLONE [Concomitant]

REACTIONS (1)
  - PROGRESSIVE MULTIFOCAL LEUKOENCEPHALOPATHY [None]
